FAERS Safety Report 6670888-2 (Version None)
Quarter: 2010Q2

REPORT INFORMATION
  Report Type: 
  Country: None (occurrence: None)
  Receive Date: 20100407
  Receipt Date: 20100401
  Transmission Date: 20101027
  Serious: Yes (Hospitalization)
  Sender: FDA-Public Use
  Company Number: CH-WYE-G05876410

PATIENT
  Age: 57 Year
  Sex: Female

DRUGS (2)
  1. EFFEXOR [Suspect]
     Indication: DEPRESSION
     Dosage: START DATE UNKNOWN, 225MG PER DAY UNTIL 22-DEC-2009
     Route: 048
  2. QUILONORM RETARD [Interacting]
     Indication: DEPRESSION
     Route: 048
     Dates: start: 20091212, end: 20091222

REACTIONS (9)
  - APHASIA [None]
  - BLOOD PRESSURE FLUCTUATION [None]
  - CONFUSIONAL STATE [None]
  - DRUG INTERACTION [None]
  - HYPERREFLEXIA [None]
  - MYDRIASIS [None]
  - SEROTONIN SYNDROME [None]
  - SOMNOLENCE [None]
  - TACHYCARDIA [None]
